FAERS Safety Report 19613449 (Version 1)
Quarter: 2021Q3

REPORT INFORMATION
  Report Type: Spontaneous
  Country: US (occurrence: US)
  Receive Date: 20210726
  Receipt Date: 20210726
  Transmission Date: 20211014
  Serious: Yes (Life-Threatening)
  Sender: FDA-Public Use
  Company Number: None

PATIENT
  Age: 39 Year
  Sex: Female
  Weight: 79 kg

DRUGS (1)
  1. AMOXIL [Suspect]
     Active Substance: AMOXICILLIN
     Route: 048
     Dates: start: 20210708, end: 20210708

REACTIONS (4)
  - Dyspnoea [None]
  - Wrong patient received product [None]
  - Drug hypersensitivity [None]
  - Throat tightness [None]

NARRATIVE: CASE EVENT DATE: 20210708
